FAERS Safety Report 6987545-5 (Version None)
Quarter: 2010Q3

REPORT INFORMATION
  Report Type: 
  Country: None (occurrence: None)
  Receive Date: 20100916
  Receipt Date: 20100903
  Transmission Date: 20110219
  Serious: Yes (Hospitalization, Other)
  Sender: FDA-Public Use
  Company Number: US-PFIZER INC-2010111822

PATIENT
  Age: 82 Year
  Sex: Female

DRUGS (11)
  1. GEODON [Suspect]
     Indication: BIPOLAR DISORDER
     Dosage: 80MG MORNING 40MG 4PM
     Route: 048
     Dates: start: 20051010, end: 20100801
  2. PAXIL [Concomitant]
     Dosage: 50 MG, UNK
     Route: 048
  3. EVISTA [Concomitant]
     Dosage: UNK
     Route: 048
  4. NORVASC [Concomitant]
     Dosage: UNK
     Route: 048
  5. SYNTHROID [Concomitant]
     Dosage: UNK
     Route: 048
  6. MONTELUKAST SODIUM [Concomitant]
     Dosage: UNK
     Route: 048
  7. FLONASE [Concomitant]
     Dosage: UNK
     Route: 045
  8. PRILOSEC [Concomitant]
     Dosage: UNK
     Route: 048
  9. ALLEGRA [Concomitant]
     Dosage: UNK
     Route: 048
  10. GLUCOSAMINE [Concomitant]
     Dosage: UNK
  11. VITAMINE C [Concomitant]
     Dosage: UNK

REACTIONS (1)
  - NEUROLEPTIC MALIGNANT SYNDROME [None]
